FAERS Safety Report 8523253 (Version 8)
Quarter: 2012Q4

REPORT INFORMATION
  Report Type: 
  Country: IE (occurrence: IE)
  Receive Date: 20120420
  Receipt Date: 20120911
  Transmission Date: 20130627
  Serious: Yes (Other)
  Sender: FDA-Public Use
  Company Number: PHFR2012IE002414

PATIENT
  Age: 61 Year
  Sex: Male

DRUGS (6)
  1. CLOZARIL [Suspect]
     Indication: SCHIZOPHRENIA
     Dosage: 600 mg, daily
     Route: 048
     Dates: start: 19940520, end: 20120413
  2. GAMANIL [Concomitant]
     Dosage: 140 mg, daily
     Route: 048
     Dates: start: 2002
  3. RISPERIDONE [Concomitant]
     Dosage: 1.5 mg, daily
     Route: 048
     Dates: start: 2003
  4. RISPERIDONE [Concomitant]
     Dosage: UNK UKN, UNK
  5. CITALOPRAM [Concomitant]
     Dosage: 20 mg, daily
     Dates: start: 2011
  6. STILNOCT [Concomitant]
     Dosage: 10 mg, daily
     Route: 048
     Dates: start: 2006

REACTIONS (7)
  - Neutropenia [Recovered/Resolved]
  - Neutrophil count decreased [Recovered/Resolved]
  - Lymphocyte count abnormal [Recovered/Resolved]
  - Sleep disorder [Recovered/Resolved]
  - White blood cell count decreased [Recovered/Resolved]
  - Eosinophil count decreased [Unknown]
  - General physical health deterioration [None]
